FAERS Safety Report 7931747-8 (Version None)
Quarter: 2011Q4

REPORT INFORMATION
  Report Type: 
  Country: None (occurrence: None)
  Receive Date: 20111121
  Receipt Date: 20111117
  Transmission Date: 20120403
  Serious: Yes (Hospitalization)
  Sender: FDA-Public Use
  Company Number: PHHY2011NL101305

PATIENT
  Sex: Female

DRUGS (10)
  1. PHENPROCOUMON [Concomitant]
     Dosage: UNK
  2. TEMAZEPAM [Concomitant]
     Dosage: 20 AS NEEDED UNK
  3. HALOPERIDOL [Concomitant]
     Dosage: 0.5 2X
  4. PANTOPRAZOLE [Concomitant]
     Dosage: UNK UKN, UNK
  5. XELODA [Concomitant]
     Dosage: 650 2X UNK
  6. ZOMETA [Suspect]
     Indication: BREAST CANCER METASTATIC
     Dosage: 4 MG/5ML PER 28 DAYS
     Route: 042
     Dates: start: 20110829
  7. ZOMETA [Suspect]
     Dosage: 4 MG/5ML PER 28 DAYS
     Route: 042
     Dates: start: 20111027
  8. DEVARON [Concomitant]
     Dosage: UNK
  9. FORADIL [Concomitant]
     Dosage: UNK UKN, UNK
  10. ALVESCO [Concomitant]
     Dosage: UNK UKN, UNK

REACTIONS (3)
  - DAYDREAMING [None]
  - FATIGUE [None]
  - MALAISE [None]
